FAERS Safety Report 24067541 (Version 1)
Quarter: 2024Q3

REPORT INFORMATION
  Report Type: Spontaneous
  Country: US (occurrence: US)
  Receive Date: 20240710
  Receipt Date: 20240710
  Transmission Date: 20241017
  Serious: Yes (Death, Life-Threatening, Hospitalization, Other)
  Sender: JOHNSON AND JOHNSON
  Company Number: US-JNJFOC-20240700174

PATIENT

DRUGS (1)
  1. TECVAYLI [Suspect]
     Active Substance: TECLISTAMAB-CQYV
     Indication: Plasma cell myeloma refractory
     Route: 065

REACTIONS (18)
  - Death [Fatal]
  - Septic shock [Fatal]
  - Sepsis [Fatal]
  - COVID-19 [Fatal]
  - Infection [Fatal]
  - Pneumonia [Fatal]
  - Plasma cell myeloma [Fatal]
  - Adverse event [Unknown]
  - Hospitalisation [Unknown]
  - Immune effector cell-associated neurotoxicity syndrome [Unknown]
  - Cytokine release syndrome [Unknown]
  - Pneumocystis jirovecii pneumonia [Unknown]
  - Cytomegalovirus infection reactivation [Unknown]
  - Pneumonia cytomegaloviral [Unknown]
  - Bell^s palsy [Unknown]
  - Neurotoxicity [Unknown]
  - Fatigue [Unknown]
  - Pyrexia [Unknown]
